FAERS Safety Report 10223671 (Version 2)
Quarter: 2014Q2

REPORT INFORMATION
  Report Type: Spontaneous
  Country: US (occurrence: US)
  Receive Date: 20140609
  Receipt Date: 20140609
  Transmission Date: 20141212
  Serious: No
  Sender: FDA-Public Use
  Company Number: US-DRREDDYS-USA/USA/14/0037879

PATIENT
  Age: 82 Year
  Sex: Female
  Weight: 74.8 kg

DRUGS (1)
  1. FEXOFENADINE HCL  OTC [Suspect]
     Indication: HYPERSENSITIVITY
     Route: 048
     Dates: start: 20140206, end: 20140206

REACTIONS (2)
  - Dysphagia [Recovered/Resolved]
  - Product size issue [Unknown]
